FAERS Safety Report 24162722 (Version 1)
Quarter: 2024Q3

REPORT INFORMATION
  Report Type: Spontaneous
  Country: US (occurrence: None)
  Receive Date: 20240801
  Receipt Date: 20240801
  Transmission Date: 20241016
  Serious: No
  Sender: Public
  Company Number: None

PATIENT
  Age: 68 Year
  Sex: Female
  Weight: 85.5 kg

DRUGS (3)
  1. MONTELUKAST [Suspect]
     Active Substance: MONTELUKAST SODIUM
     Indication: Dermatitis atopic
     Dosage: AT BEDTIME ORAL
     Route: 048
     Dates: start: 20161015, end: 20240727
  2. BIOTIN [Concomitant]
  3. juice/calcium [Concomitant]

REACTIONS (3)
  - Sleep disorder [None]
  - Agitation [None]
  - Intrusive thoughts [None]

NARRATIVE: CASE EVENT DATE: 20240729
